FAERS Safety Report 8727928 (Version 2)
Quarter: 2013Q4

REPORT INFORMATION
  Report Type: Spontaneous
  Country: US (occurrence: US)
  Receive Date: 20120816
  Receipt Date: 20131101
  Transmission Date: 20140711
  Serious: No
  Sender: FDA-Public Use
  Company Number: US-009507513-1208USA005981

PATIENT
  Sex: 0

DRUGS (1)
  1. DR. SCHOLL^S BLISTER DEFENSE ANTI-FRICTION STICK [Suspect]
     Indication: PRODUCT USED FOR UNKNOWN INDICATION
     Dosage: UNK, UNKNOWN
     Route: 061

REACTIONS (2)
  - Blister [Unknown]
  - Drug ineffective [Unknown]
